FAERS Safety Report 15702843 (Version 1)
Quarter: 2018Q4

REPORT INFORMATION
  Report Type: Spontaneous
  Country: CN (occurrence: CN)
  Receive Date: 20181210
  Receipt Date: 20181210
  Transmission Date: 20190205
  Serious: Yes (Other)
  Sender: FDA-Public Use
  Company Number: CN-ROCHE-2225416

PATIENT
  Age: 63 Year
  Sex: Male

DRUGS (24)
  1. MABTHERA [Suspect]
     Active Substance: RITUXIMAB
     Indication: B-CELL LYMPHOMA
     Route: 065
     Dates: start: 20181016
  2. MABTHERA [Suspect]
     Active Substance: RITUXIMAB
     Route: 065
     Dates: start: 20181017
  3. MEROPENEM. [Concomitant]
     Active Substance: MEROPENEM
     Route: 065
     Dates: start: 20181012, end: 20181020
  4. COMPOUND GLYCYRRHIZIN (AMINOACETIC ACID/CYSTEINE HYDROCHLORIDE/GLYCYRR [Concomitant]
  5. ERTAPENEM. [Concomitant]
     Active Substance: ERTAPENEM SODIUM
  6. ETOPOSIDE PHOSPHATE [Concomitant]
     Active Substance: ETOPOSIDE PHOSPHATE
     Dosage: 150MG ON DAY 0,100MG ON DAY 3,7,10
     Route: 065
     Dates: start: 20181016
  7. ETOPOSIDE PHOSPHATE [Concomitant]
     Active Substance: ETOPOSIDE PHOSPHATE
     Route: 065
     Dates: start: 20181019
  8. ESOMEPRAZOLE MAGNESIUM. [Concomitant]
     Active Substance: ESOMEPRAZOLE MAGNESIUM
  9. TEICOPLANIN [Concomitant]
     Active Substance: TEICOPLANIN
  10. DEXAMETHASONE. [Concomitant]
     Active Substance: DEXAMETHASONE
     Route: 065
     Dates: start: 20181015, end: 20181018
  11. LINEZOLID. [Concomitant]
     Active Substance: LINEZOLID
     Route: 065
     Dates: start: 20181012
  12. VORICONAZOLE. [Concomitant]
     Active Substance: VORICONAZOLE
  13. CYCLOPHOSPHAMIDE. [Concomitant]
     Active Substance: CYCLOPHOSPHAMIDE
     Indication: B-CELL LYMPHOMA
     Dosage: ON DAY 2, 7
     Route: 065
     Dates: start: 20181016
  14. DOXORUBICIN [Concomitant]
     Active Substance: DOXORUBICIN
     Dosage: ON DAY 2
     Route: 065
     Dates: start: 20181016
  15. ETOPOSIDE PHOSPHATE [Concomitant]
     Active Substance: ETOPOSIDE PHOSPHATE
     Route: 065
     Dates: start: 20181016
  16. GLUTATHIONE [Concomitant]
     Active Substance: GLUTATHIONE
  17. ORNITHINE ASPARTATE [Concomitant]
     Active Substance: ORNITHINE ASPARTATE
  18. VINORELBINE [Concomitant]
     Active Substance: VINORELBINE\VINORELBINE TARTRATE
     Dosage: 20MG ON DAY 2, 10 MG ON DAY 7
     Route: 065
     Dates: start: 20181016
  19. DEXAMETHASONE. [Concomitant]
     Active Substance: DEXAMETHASONE
     Dosage: DAY 0 TO DAY 13
     Route: 065
     Dates: start: 20181016
  20. METHYLPREDNISOLONE SODIUM SUCCINATE. [Concomitant]
     Active Substance: METHYLPREDNISOLONE SODIUM SUCCINATE
     Dosage: 80MG, THEN CHANGED TO 40MG
     Route: 065
  21. POLYENE PHOSPHATIDYLCHOLINE [Concomitant]
     Active Substance: PHOSPHOLIPID
  22. CASPOFUNGIN ACETATE. [Concomitant]
     Active Substance: CASPOFUNGIN ACETATE
     Indication: ANTIFUNGAL TREATMENT
     Route: 065
     Dates: start: 20181012, end: 20181020
  23. RECOMBINANT HUMAN THROMBOPOIETIN [Concomitant]
     Active Substance: THROMBOPOIETIN
  24. VANCOMYCIN [Concomitant]
     Active Substance: VANCOMYCIN

REACTIONS (6)
  - Melaena [Unknown]
  - Stupor [Recovered/Resolved]
  - Hypotension [Unknown]
  - Confusional state [Unknown]
  - Platelet count decreased [Unknown]
  - Hyperglycaemia [Unknown]

NARRATIVE: CASE EVENT DATE: 20181018
